FAERS Safety Report 6444779-6 (Version None)
Quarter: 2009Q4

REPORT INFORMATION
  Report Type: 
  Country: None (occurrence: None)
  Receive Date: 20091118
  Receipt Date: 20091113
  Transmission Date: 20100525
  Serious: Yes (Hospitalization)
  Sender: FDA-Public Use
  Company Number: B0604167A

PATIENT
  Sex: Female
  Weight: 61 kg

DRUGS (4)
  1. LAMICTAL [Suspect]
     Dosage: 10MG PER DAY
     Route: 048
  2. KARDEGIC [Concomitant]
     Dosage: 75MG PER DAY
     Route: 048
  3. LOXEN LP [Concomitant]
     Dosage: 50MG TWICE PER DAY
     Route: 048
  4. DOLIPRANE [Concomitant]
     Dosage: 1G FOUR TIMES PER DAY
     Route: 048

REACTIONS (2)
  - FALL [None]
  - HYPONATRAEMIA [None]
